FAERS Safety Report 22278501 (Version 2)
Quarter: 2023Q2

REPORT INFORMATION
  Report Type: Spontaneous
  Country: US (occurrence: US)
  Receive Date: 20230503
  Receipt Date: 20230518
  Transmission Date: 20230722
  Serious: Yes (Other)
  Sender: FDA-Public Use
  Company Number: US-SA-SAC20230502001106

PATIENT
  Sex: Male

DRUGS (1)
  1. DUPIXENT [Suspect]
     Active Substance: DUPILUMAB
     Indication: Dermatitis atopic
     Dosage: 300 MG, QOW
     Route: 058
     Dates: start: 202203

REACTIONS (15)
  - Pulmonary oedema [Unknown]
  - Cough [Unknown]
  - Chills [Unknown]
  - Fatigue [Unknown]
  - Pollakiuria [Unknown]
  - Weight decreased [Unknown]
  - Aphonia [Unknown]
  - Tonsillar hypertrophy [Unknown]
  - Tonsillar inflammation [Unknown]
  - Ear discomfort [Unknown]
  - Sleep disorder [Unknown]
  - Ear pain [Unknown]
  - Headache [Unknown]
  - Hypersensitivity [Unknown]
  - Arthralgia [Unknown]

NARRATIVE: CASE EVENT DATE: 20230101
